FAERS Safety Report 14444433 (Version 1)
Quarter: 2018Q1

REPORT INFORMATION
  Report Type: Other
  Country: IE (occurrence: IE)
  Receive Date: 20180125
  Receipt Date: 20180125
  Transmission Date: 20180509
  Serious: Yes (Other)
  Sender: FDA-Public Use
  Company Number: IE-MACLEODS PHARMACEUTICALS US LTD-MAC2018008747

PATIENT

DRUGS (18)
  1. LEVOFLOXACIN. [Suspect]
     Active Substance: LEVOFLOXACIN
     Indication: DISSEMINATED TUBERCULOSIS
  2. RIFAMPICIN [Suspect]
     Active Substance: RIFAMPIN
     Dosage: UNK
     Route: 065
  3. HEPARIN SODIUM. [Suspect]
     Active Substance: HEPARIN SODIUM
     Indication: CEREBRAL INFARCTION
     Dosage: 10000 DF, IU
     Route: 065
  4. ISONIAZID. [Suspect]
     Active Substance: ISONIAZID
     Indication: PRODUCT USED FOR UNKNOWN INDICATION
     Dosage: 200 MG, QD
     Route: 037
  5. MEROPENEM. [Suspect]
     Active Substance: MEROPENEM
     Indication: MENINGITIS TUBERCULOUS
     Dosage: 6 GM, QD, DAILY
     Route: 065
  6. ETHAMBUTOL [Suspect]
     Active Substance: ETHAMBUTOL HYDROCHLORIDE
     Indication: MENINGITIS TUBERCULOUS
     Dosage: 750 MG, QD, DAILY
     Route: 065
  7. ISONIAZID. [Suspect]
     Active Substance: ISONIAZID
     Dosage: 300 MG, 1/WEEK
     Route: 065
  8. PYRAZINAMIDE. [Suspect]
     Active Substance: PYRAZINAMIDE
     Indication: DISSEMINATED TUBERCULOSIS
     Dosage: 1.2 GM, QD, DAILY
     Route: 065
  9. LEVOFLOXACIN. [Suspect]
     Active Substance: LEVOFLOXACIN
     Indication: MENINGITIS TUBERCULOUS
     Dosage: 500 MG, QD, DAILY
     Route: 065
  10. ISONIAZID. [Suspect]
     Active Substance: ISONIAZID
     Dosage: 100 MG, 1 IN 1 WK
     Route: 037
  11. RIFAMPICIN [Suspect]
     Active Substance: RIFAMPIN
     Indication: DISSEMINATED TUBERCULOSIS
     Dosage: 450 MG, QD
     Route: 065
  12. DEXAMETHASONE. [Suspect]
     Active Substance: DEXAMETHASONE
     Indication: DISSEMINATED TUBERCULOSIS
     Dosage: 19.6 MG, QD, DAILY
     Route: 065
  13. ISONIAZID. [Suspect]
     Active Substance: ISONIAZID
     Dosage: 100 MG, 3 IN 1 WK
     Route: 037
  14. ISONIAZID. [Suspect]
     Active Substance: ISONIAZID
     Dosage: 500 MG, UNK
     Route: 065
  15. DEXAMETHASONE. [Suspect]
     Active Substance: DEXAMETHASONE
     Indication: MENINGITIS TUBERCULOUS
  16. ASPIRIN. [Concomitant]
     Active Substance: ASPIRIN
     Indication: NONINFECTIVE ENCEPHALITIS
  17. ASPIRIN. [Concomitant]
     Active Substance: ASPIRIN
     Indication: TRANSVERSE SINUS THROMBOSIS
     Dosage: 100 MG, UNK
     Route: 065
  18. STREPTOMYCIN [Concomitant]
     Active Substance: STREPTOMYCIN\STREPTOMYCIN SULFATE
     Indication: DISSEMINATED TUBERCULOSIS
     Dosage: 1 GM, QD
     Route: 065

REACTIONS (2)
  - Stillbirth [Recovered/Resolved]
  - Maternal exposure during pregnancy [Unknown]
